FAERS Safety Report 20708716 (Version 1)
Quarter: 2022Q2

REPORT INFORMATION
  Report Type: Spontaneous
  Country: US (occurrence: US)
  Receive Date: 20220414
  Receipt Date: 20220414
  Transmission Date: 20220721
  Serious: Yes (Life-Threatening, Other)
  Sender: FDA-Public Use
  Company Number: US-drreddys-SPO/USA/22/0148785

PATIENT
  Age: 49 Year
  Sex: Male

DRUGS (2)
  1. PROPOFOL [Suspect]
     Active Substance: PROPOFOL
     Indication: Agitation
     Dosage: HIGH-DOSE SEDATION UP TO 65 MCG/KG/MIN
  2. PROPOFOL [Suspect]
     Active Substance: PROPOFOL
     Indication: Sedation

REACTIONS (3)
  - Ventricular hypokinesia [Recovered/Resolved]
  - Bundle branch block right [Recovered/Resolved]
  - Propofol infusion syndrome [Recovered/Resolved]
